FAERS Safety Report 7220963-9 (Version None)
Quarter: 2011Q1

REPORT INFORMATION
  Report Type: 
  Country: None (occurrence: None)
  Receive Date: 20110112
  Receipt Date: 20110104
  Transmission Date: 20110831
  Serious: Yes (Other)
  Sender: FDA-Public Use
  Company Number: US-JNJFOC-20110101487

PATIENT
  Age: 18 Year
  Sex: Male

DRUGS (4)
  1. BENZTROPINE MESYLATE [Suspect]
     Indication: ILL-DEFINED DISORDER
     Route: 065
  2. MODAFINIL [Suspect]
     Indication: ILL-DEFINED DISORDER
     Route: 065
  3. BUPROPION [Suspect]
     Indication: ILL-DEFINED DISORDER
     Route: 065
  4. HALOPERIDOL [Suspect]
     Indication: ILL-DEFINED DISORDER
     Route: 065

REACTIONS (2)
  - DEPRESSED MOOD [None]
  - TIC [None]
